FAERS Safety Report 23369635 (Version 1)
Quarter: 2024Q1

REPORT INFORMATION
  Report Type: Other
  Country: None (occurrence: IT)
  Receive Date: 20240105
  Receipt Date: 20240105
  Transmission Date: 20240409
  Serious: Yes (Hospitalization, Other)
  Sender: FDA-Public Use
  Company Number: IT-B.Braun Medical Inc.-2150224

PATIENT
  Age: 72 Year
  Sex: Female

DRUGS (3)
  1. CEFAZOLIN [Suspect]
     Active Substance: CEFAZOLIN
     Indication: Intervertebral discitis
  2. OXACILLIN [Suspect]
     Active Substance: OXACILLIN SODIUM
  3. LEVOFLOXACIN [Suspect]
     Active Substance: LEVOFLOXACIN

REACTIONS (3)
  - Clostridium difficile colitis [None]
  - Prothrombin time prolonged [None]
  - Vitamin K deficiency [None]
